FAERS Safety Report 7622432-0 (Version None)
Quarter: 2011Q3

REPORT INFORMATION
  Report Type: 
  Country: None (occurrence: None)
  Receive Date: 20110718
  Receipt Date: 20110718
  Transmission Date: 20111222
  Serious: Yes (Life-Threatening)
  Sender: FDA-Public Use
  Company Number: None

PATIENT
  Age: 47 Year
  Sex: Male
  Weight: 52.1637 kg

DRUGS (2)
  1. IMIPRAMINE [Suspect]
     Indication: DEPRESSION
     Dosage: THREE 25MG TABLETS ONCE PER DAY PO
     Route: 048
     Dates: start: 20110624, end: 20110705
  2. IMIPRAMINE [Suspect]
     Indication: GASTROINTESTINAL DISORDER THERAPY
     Dosage: THREE 25MG TABLETS ONCE PER DAY PO
     Route: 048
     Dates: start: 20110624, end: 20110705

REACTIONS (14)
  - CONSTIPATION [None]
  - HEADACHE [None]
  - REACTION TO DRUG EXCIPIENTS [None]
  - PHARYNGEAL OEDEMA [None]
  - PAINFUL DEFAECATION [None]
  - MUSCULOSKELETAL STIFFNESS [None]
  - PRODUCT SUBSTITUTION ISSUE [None]
  - CIRCADIAN RHYTHM SLEEP DISORDER [None]
  - INITIAL INSOMNIA [None]
  - NAUSEA [None]
  - ABDOMINAL PAIN UPPER [None]
  - BURNING SENSATION [None]
  - PRODUCT DOSAGE FORM ISSUE [None]
  - SOMNOLENCE [None]
